FAERS Safety Report 17093045 (Version 2)
Quarter: 2025Q3

REPORT INFORMATION
  Report Type: Report from Study
  Country: US (occurrence: US)
  Receive Date: 20191129
  Receipt Date: 20250821
  Transmission Date: 20251021
  Serious: No
  Sender: MERCK SHARP & DOHME LLC
  Company Number: US-009507513-1911USA011227

PATIENT
  Age: 54 Year
  Sex: Female

DRUGS (5)
  1. METFORMIN HYDROCHLORIDE\SITAGLIPTIN PHOSPHATE [Suspect]
     Active Substance: METFORMIN HYDROCHLORIDE\SITAGLIPTIN PHOSPHATE
     Indication: Blood glucose
     Route: 048
     Dates: start: 2016, end: 20191123
  2. METFORMIN HYDROCHLORIDE\SITAGLIPTIN PHOSPHATE [Suspect]
     Active Substance: METFORMIN HYDROCHLORIDE\SITAGLIPTIN PHOSPHATE
     Indication: Blood glucose
     Dosage: 50MG / ONCE A DAY, STRENGTH: 50/1000
     Route: 048
     Dates: end: 20250814
  3. GLIPIZIDE [Concomitant]
     Active Substance: GLIPIZIDE
  4. ATORVASTATIN [Concomitant]
     Active Substance: ATORVASTATIN
  5. TRULICITY [Concomitant]
     Active Substance: DULAGLUTIDE

REACTIONS (4)
  - Blood glucose increased [Not Recovered/Not Resolved]
  - Inappropriate schedule of product administration [Unknown]
  - Product dose omission issue [Unknown]
  - Product dose omission issue [Unknown]

NARRATIVE: CASE EVENT DATE: 20191101
